FAERS Safety Report 15686333 (Version 1)
Quarter: 2018Q4

REPORT INFORMATION
  Report Type: Report from Study
  Country: None (occurrence: GB)
  Receive Date: 20181204
  Receipt Date: 20181204
  Transmission Date: 20190205
  Serious: Yes (Other)
  Sender: FDA-Public Use
  Company Number: GB-INGENUS PHARMACEUTICALS NJ, LLC-ING201811-001110

PATIENT
  Age: 80 Year
  Sex: Male

DRUGS (1)
  1. CARISOPRODOL, ASPIRIN AND CODEINE PHOSPHATE [Suspect]
     Active Substance: ASPIRIN\CARISOPRODOL\CODEINE PHOSPHATE

REACTIONS (1)
  - Pericardial effusion [Unknown]
